FAERS Safety Report 14554652 (Version 1)
Quarter: 2018Q1

REPORT INFORMATION
  Report Type: Spontaneous
  Country: US (occurrence: US)
  Receive Date: 20180218
  Receipt Date: 20180218
  Transmission Date: 20180509
  Serious: Yes (Disabling, Other)
  Sender: FDA-Public Use
  Company Number: None

PATIENT
  Age: 32 Year
  Sex: Female
  Weight: 55.35 kg

DRUGS (5)
  1. VITAMIN D [Concomitant]
     Active Substance: CHOLECALCIFEROL
  2. IBUPROFEN. [Concomitant]
     Active Substance: IBUPROFEN
  3. VITAMIN B COMPLEX [Concomitant]
     Active Substance: CYANOCOBALAMIN\DEXPANTHENOL\NIACINAMIDE\PYRIDOXINE HYDROCHLORIDE\RIBOFLAVIN 5^-PHOSPHATE SODIUM\THIAMINE HYDROCHLORIDE\VITAMIN B COMPLEX
  4. DULOXETINE 30 MG [Suspect]
     Active Substance: DULOXETINE
     Indication: DEPRESSION
     Dosage: ?          QUANTITY:1 CAPSULE(S);?
     Route: 048
     Dates: start: 20171015, end: 20180210
  5. ASHWAGANDA ROOT [Concomitant]

REACTIONS (10)
  - Feeling abnormal [None]
  - Hypoaesthesia [None]
  - Headache [None]
  - Paraesthesia [None]
  - Nausea [None]
  - Pain [None]
  - Insomnia [None]
  - Anxiety [None]
  - Agitation [None]
  - Disorientation [None]

NARRATIVE: CASE EVENT DATE: 20180211
